FAERS Safety Report 6440917-X (Version None)
Quarter: 2009Q4

REPORT INFORMATION
  Report Type: 
  Country: None (occurrence: None)
  Receive Date: 20091116
  Receipt Date: 20091111
  Transmission Date: 20100525
  Serious: Yes (Death, Other)
  Sender: FDA-Public Use
  Company Number: PHEH2009US10737

PATIENT
  Sex: Male
  Weight: 67.574 kg

DRUGS (13)
  1. EXJADE [Suspect]
     Indication: IRON OVERLOAD
     Dosage: 1250 DAILY MG
     Route: 048
     Dates: start: 20090409, end: 20090428
  2. CYCLOPHOSPHAMIDE [Concomitant]
     Dosage: 6 CYCLES
  3. ADRIAMYCIN PFS [Concomitant]
     Dosage: 6 CYCLES
  4. VINCRISTINE [Concomitant]
     Dosage: 6 CYCLES
  5. PREDNISONE [Concomitant]
     Dosage: 6 CYLES
  6. ZITHROMAX [Concomitant]
     Dosage: AS DIRECTED
  7. LOTREL [Concomitant]
     Dosage: 10/20MG DAILY
     Route: 048
  8. COMPAZINE [Concomitant]
     Dosage: 10 MG, UNK
  9. LASIX [Concomitant]
     Dosage: 20 MG, UNK
  10. ALLOPURINOL [Concomitant]
     Dosage: 100 MG, UNK
  11. PROTONIX [Concomitant]
     Dosage: 40 MG, UNK
  12. ICAR [Concomitant]
     Dosage: UNK
  13. BLOOD AND RELATED PRODUCTS [Concomitant]

REACTIONS (35)
  - ALBUMIN GLOBULIN RATIO DECREASED [None]
  - ASPARTATE AMINOTRANSFERASE INCREASED [None]
  - BLOOD ALBUMIN DECREASED [None]
  - BLOOD CALCIUM DECREASED [None]
  - BLOOD CHLORIDE DECREASED [None]
  - BLOOD CREATININE INCREASED [None]
  - BLOOD IMMUNOGLOBULIN G INCREASED [None]
  - BLOOD LACTATE DEHYDROGENASE INCREASED [None]
  - BLOOD SODIUM DECREASED [None]
  - BLOOD UREA INCREASED [None]
  - COUGH [None]
  - DEATH [None]
  - EMPHYSEMA [None]
  - EOSINOPHIL COUNT DECREASED [None]
  - GLOBULINS INCREASED [None]
  - HAEMATOCRIT DECREASED [None]
  - HAEMOGLOBIN DECREASED [None]
  - HEPATIC CYST [None]
  - HEPATIC LESION [None]
  - HILAR LYMPHADENOPATHY [None]
  - LYMPHADENOPATHY [None]
  - LYMPHADENOPATHY MEDIASTINAL [None]
  - MEAN CELL HAEMOGLOBIN DECREASED [None]
  - MEAN CELL VOLUME DECREASED [None]
  - MONOCYTE COUNT INCREASED [None]
  - OROPHARYNGEAL PAIN [None]
  - PLEURAL EFFUSION [None]
  - PROTEIN TOTAL INCREASED [None]
  - RED BLOOD CELL COUNT DECREASED [None]
  - RED CELL DISTRIBUTION WIDTH INCREASED [None]
  - SPINAL OSTEOARTHRITIS [None]
  - SPLENOMEGALY [None]
  - THROMBOCYTOPENIA [None]
  - WEIGHT DECREASED [None]
  - WHITE BLOOD CELL COUNT INCREASED [None]
